FAERS Safety Report 10977672 (Version 1)
Quarter: 2015Q2

REPORT INFORMATION
  Report Type: Spontaneous
  Country: US (occurrence: None)
  Receive Date: 20150401
  Receipt Date: 20150401
  Transmission Date: 20150821
  Serious: No
  Sender: FDA-Public Use
  Company Number: None

PATIENT
  Age: 25 Year
  Sex: Female

DRUGS (1)
  1. VANIQA [Suspect]
     Active Substance: EFLORNITHINE HYDROCHLORIDE
     Indication: HAIR GROWTH ABNORMAL
     Dosage: SMALLEST AMOUNT POSSIBLE?TWICE DAILY?APPLIED TO A SURFACE, USUALLY THE SKIN
     Dates: start: 20150213, end: 20150311

REACTIONS (1)
  - Acne [None]
